FAERS Safety Report 12934506 (Version 1)
Quarter: 2016Q4

REPORT INFORMATION
  Report Type: Spontaneous
  Country: BR (occurrence: BR)
  Receive Date: 20161111
  Receipt Date: 20161111
  Transmission Date: 20170207
  Serious: Yes (Other)
  Sender: FDA-Public Use
  Company Number: BR-JNJFOC-20161109859

PATIENT
  Age: 22 Year
  Sex: Male

DRUGS (3)
  1. XARELTO [Suspect]
     Active Substance: RIVAROXABAN
     Indication: ANTICOAGULANT THERAPY
     Route: 048
     Dates: start: 20161028, end: 20161031
  2. DIPYRONE [Concomitant]
     Active Substance: DIPYRONE
     Indication: KNEE OPERATION
     Route: 048
     Dates: start: 20161028
  3. CEFADROXIL. [Concomitant]
     Active Substance: CEFADROXIL
     Indication: KNEE OPERATION
     Route: 048
     Dates: start: 20161028

REACTIONS (2)
  - Unevaluable event [Recovering/Resolving]
  - Pyrexia [Unknown]

NARRATIVE: CASE EVENT DATE: 20161031
